FAERS Safety Report 5508311-3 (Version None)
Quarter: 2007Q4

REPORT INFORMATION
  Report Type: 
  Country: None (occurrence: None)
  Receive Date: 20071106
  Receipt Date: 20071012
  Transmission Date: 20080405
  Serious: No
  Sender: FDA-Public Use
  Company Number: US-BOEHRINGER INGELHEIM PHARMACEUTICALS, INC.-2007-BP-22712BP

PATIENT
  Age: 8 Year
  Sex: Male

DRUGS (6)
  1. CATAPRES-TTS-1 [Suspect]
     Indication: ATTENTION DEFICIT/HYPERACTIVITY DISORDER
     Route: 061
     Dates: start: 20060101, end: 20071001
  2. STRATTERA [Concomitant]
     Indication: ATTENTION DEFICIT/HYPERACTIVITY DISORDER
  3. TENEX [Concomitant]
     Indication: ATTENTION DEFICIT/HYPERACTIVITY DISORDER
  4. DEPAKOTE [Concomitant]
     Indication: BIPOLAR DISORDER
  5. SEROQUEL [Concomitant]
     Indication: BIPOLAR DISORDER
  6. RESPRIADAL [Concomitant]

REACTIONS (1)
  - APPLICATION SITE ERYTHEMA [None]
